FAERS Safety Report 4970356-X (Version None)
Quarter: 2006Q2

REPORT INFORMATION
  Report Type: 
  Country: None (occurrence: None)
  Receive Date: 20060406
  Receipt Date: 20060329
  Transmission Date: 20061013
  Serious: Yes (Other)
  Sender: FDA-Public Use
  Company Number: 2006044389

PATIENT
  Sex: Male
  Weight: 99.7913 kg

DRUGS (6)
  1. NEURONTIN [Suspect]
     Indication: NEURALGIA
     Dosage: (1 IN 1 D), ORAL
     Route: 048
  2. FENTANYL [Concomitant]
  3. VICODIN ES [Concomitant]
  4. DEMEROL [Concomitant]
  5. PROMETHAZINE [Concomitant]
  6. MARCAINE [Concomitant]

REACTIONS (5)
  - DIZZINESS [None]
  - DRUG EFFECT DECREASED [None]
  - DRUG TOLERANCE INCREASED [None]
  - FEELING ABNORMAL [None]
  - SPINAL LAMINECTOMY [None]
